FAERS Safety Report 12911992 (Version 2)
Quarter: 2016Q4

REPORT INFORMATION
  Report Type: Report from Study
  Country: JP (occurrence: JP)
  Receive Date: 20161104
  Receipt Date: 20161121
  Transmission Date: 20170207
  Serious: Yes (Death, Hospitalization)
  Sender: FDA-Public Use
  Company Number: PHJP2016JP025804

PATIENT
  Age: 79 Year
  Sex: Male
  Weight: 74.6 kg

DRUGS (16)
  1. METHYCOBAL [Concomitant]
     Active Substance: METHYLCOBALAMIN
     Indication: NEUROPATHY PERIPHERAL
     Dosage: 500 UG, TID
     Route: 048
     Dates: start: 20030711
  2. ZADITEN [Concomitant]
     Active Substance: KETOTIFEN FUMARATE
     Indication: CHRONIC SINUSITIS
     Dosage: Q.S., PRN
     Route: 045
     Dates: start: 200304
  3. ENALAPRIL [Suspect]
     Active Substance: ENALAPRIL
     Indication: CARDIAC FAILURE CHRONIC
     Dosage: UNK
     Route: 048
     Dates: start: 20160219, end: 20160826
  4. DIGOXIN. [Concomitant]
     Active Substance: DIGOXIN
     Indication: CARDIAC FAILURE
     Dosage: 0.125 MG, QD
     Route: 048
     Dates: start: 20040806
  5. PREDONINE [Concomitant]
     Active Substance: PREDNISOLONE\PREDNISOLONE ACETATE\PREDNISOLONE SODIUM SUCCINATE
     Indication: ASTHMA
     Dosage: 15 MG, QOD
     Route: 048
     Dates: start: 20030711
  6. TULOBUTEROL [Concomitant]
     Active Substance: TULOBUTEROL
     Indication: ASTHMA
     Dosage: 2 MG, PRN
     Route: 062
     Dates: start: 20130524
  7. CALFINA [Concomitant]
     Active Substance: ALFACALCIDOL
     Indication: PROPHYLAXIS
     Dosage: 0.5 UG, QD
     Route: 048
     Dates: start: 20131202
  8. ALDACTONE A [Concomitant]
     Active Substance: SPIRONOLACTONE
     Indication: CARDIAC FAILURE
     Dosage: 25 MG, QD
     Route: 048
     Dates: start: 20071005
  9. BAKUMONDOTO [Concomitant]
     Active Substance: HERBALS
     Indication: ASTHMA
     Dosage: 3 G, QD
     Route: 048
     Dates: start: 200306
  10. PREDONINE [Concomitant]
     Active Substance: PREDNISOLONE\PREDNISOLONE ACETATE\PREDNISOLONE SODIUM SUCCINATE
     Indication: EOSINOPHILIA
  11. NEXIUM CONTROL [Concomitant]
     Active Substance: ESOMEPRAZOLE MAGNESIUM
     Indication: GASTRITIS PROPHYLAXIS
     Dosage: 10 MG, QD
     Route: 048
     Dates: start: 20131202
  12. ENTRESTO [Suspect]
     Active Substance: SACUBITRIL\VALSARTAN
     Indication: CARDIAC FAILURE CHRONIC
     Dosage: UNK
     Route: 048
     Dates: start: 20160205
  13. FUROSEMIDE. [Concomitant]
     Active Substance: FUROSEMIDE
     Indication: CARDIAC FAILURE
     Dosage: 10 MG, QD
     Route: 048
     Dates: start: 20071005
  14. ARTIST [Concomitant]
     Active Substance: CARVEDILOL
     Indication: CARDIAC FAILURE
     Dosage: 2.5 MG, QD
     Route: 048
     Dates: start: 20031121
  15. TERBINAFINE. [Concomitant]
     Active Substance: TERBINAFINE
     Indication: TINEA INFECTION
     Dosage: Q.S., PRN
     Route: 062
     Dates: start: 20160628
  16. FLUTIDE [Concomitant]
     Active Substance: FLUTICASONE PROPIONATE
     Indication: ASTHMA
     Dosage: WHEN HE HAD ASTHMA, QD
     Route: 055
     Dates: start: 200306

REACTIONS (2)
  - Pancreatic neoplasm [Not Recovered/Not Resolved]
  - Death [Fatal]

NARRATIVE: CASE EVENT DATE: 20160908
